FAERS Safety Report 7970649-8 (Version None)
Quarter: 2011Q4

REPORT INFORMATION
  Report Type: 
  Country: None (occurrence: None)
  Receive Date: 20111212
  Receipt Date: 20111207
  Transmission Date: 20120403
  Serious: No
  Sender: FDA-Public Use
  Company Number: US-TEVA-312798USA

PATIENT
  Sex: Female
  Weight: 86.26 kg

DRUGS (1)
  1. PLAN B ONE-STEP [Suspect]
     Indication: POST COITAL CONTRACEPTION
     Dosage: 1.5 MILLIGRAM;
     Route: 048
     Dates: start: 20111206, end: 20111206

REACTIONS (7)
  - BREAST SWELLING [None]
  - ABDOMINAL PAIN LOWER [None]
  - NAUSEA [None]
  - ABDOMINAL PAIN UPPER [None]
  - FATIGUE [None]
  - DIZZINESS [None]
  - BREAST PAIN [None]
